FAERS Safety Report 11830812 (Version 1)
Quarter: 2015Q4

REPORT INFORMATION
  Report Type: Spontaneous
  Country: US (occurrence: None)
  Receive Date: 20151211
  Receipt Date: 20151211
  Transmission Date: 20160305
  Serious: Yes (Other)
  Sender: FDA-Public Use
  Company Number: None

PATIENT
  Age: 9 Year
  Sex: Male
  Weight: 32.21 kg

DRUGS (1)
  1. INTUNIV 3MG GENERIC FORM GUANFACINE [Suspect]
     Active Substance: GUANFACINE HYDROCHLORIDE
     Indication: ATTENTION DEFICIT/HYPERACTIVITY DISORDER
     Route: 048
     Dates: start: 201411, end: 201502

REACTIONS (2)
  - Somnolence [None]
  - Product substitution issue [None]

NARRATIVE: CASE EVENT DATE: 201411
